FAERS Safety Report 4622899-6 (Version None)
Quarter: 2005Q1

REPORT INFORMATION
  Report Type: 
  Country: None (occurrence: None)
  Receive Date: 20050329
  Receipt Date: 20050311
  Transmission Date: 20050727
  Serious: Yes (Hospitalization)
  Sender: FDA-Public Use
  Company Number: 10566

PATIENT
  Age: 71 Year
  Sex: Female

DRUGS (5)
  1. MITOMYCIN [Suspect]
     Indication: BLADDER CANCER
  2. BENDROFLUAZIDE [Concomitant]
  3. SIMVASTATIN [Concomitant]
  4. TAMOXIFEN CITRATE [Concomitant]
  5. ACETYL SALICYLIC ACID USP BAT [Concomitant]

REACTIONS (2)
  - OEDEMA PERIPHERAL [None]
  - PURPURA [None]
